FAERS Safety Report 6727690-2 (Version None)
Quarter: 2010Q2

REPORT INFORMATION
  Report Type: 
  Country: None (occurrence: None)
  Receive Date: 20100514
  Receipt Date: 20100514
  Transmission Date: 20101027
  Serious: No
  Sender: FDA-Public Use
  Company Number: None

PATIENT
  Age: 81 Year
  Sex: Male
  Weight: 79.3795 kg

DRUGS (2)
  1. HYDRALAZINE HCL [Suspect]
     Indication: BLOOD POTASSIUM INCREASED
     Dates: start: 20100506, end: 20100506
  2. HYDRALAZINE HCL [Suspect]
     Indication: HYPERTENSION
     Dates: start: 20100506, end: 20100506

REACTIONS (3)
  - HEADACHE [None]
  - HEART RATE INCREASED [None]
  - INCORRECT DOSE ADMINISTERED [None]
